FAERS Safety Report 6223056-2 (Version None)
Quarter: 2009Q2

REPORT INFORMATION
  Report Type: 
  Country: None (occurrence: None)
  Receive Date: 20090611
  Receipt Date: 20090601
  Transmission Date: 20091009
  Serious: Yes (Other)
  Sender: FDA-Public Use
  Company Number: PT-PFIZER INC-2009205973

PATIENT

DRUGS (4)
  1. CELEBREX [Suspect]
     Dosage: 200 MG, 1X/DAY
     Route: 048
     Dates: start: 20090301, end: 20090313
  2. MAGNESONA [Concomitant]
     Dosage: UNK
     Route: 048
  3. DIGOXIN [Concomitant]
     Dosage: 0.25 MG, UNK
  4. DORMONOCT [Concomitant]

REACTIONS (3)
  - ERYTHEMA [None]
  - EYE OEDEMA [None]
  - FACE OEDEMA [None]
